FAERS Safety Report 14271304 (Version 2)
Quarter: 2020Q3

REPORT INFORMATION
  Report Type: Report from Study
  Country: US (occurrence: US)
  Receive Date: 20171211
  Receipt Date: 20180413
  Transmission Date: 20201105
  Serious: Yes (Hospitalization)
  Sender: FDA-Public Use
  Company Number: US-JNJFOC-20171035575

PATIENT
  Age: 74 Year
  Sex: Male
  Weight: 61.04 kg

DRUGS (18)
  1. DARATUMUMAB [Suspect]
     Active Substance: DARATUMUMAB
     Indication: ADENOCARCINOMA PANCREAS
     Route: 042
     Dates: start: 20170926
  2. CREON [Concomitant]
     Active Substance: PANCRELIPASE AMYLASE\PANCRELIPASE LIPASE\PANCRELIPASE PROTEASE
     Dates: start: 20170523
  3. BENADRYL [Concomitant]
     Active Substance: DIPHENHYDRAMINE HYDROCHLORIDE
     Dates: start: 20170926
  4. BACTRIM [Concomitant]
     Active Substance: SULFAMETHOXAZOLE\TRIMETHOPRIM
     Dates: start: 20170926
  5. MONTELUKAST [Concomitant]
     Active Substance: MONTELUKAST SODIUM
     Dates: start: 20170926
  6. MEDROL [Concomitant]
     Active Substance: METHYLPREDNISOLONE
     Dates: start: 20170927
  7. DARATUMUMAB [Suspect]
     Active Substance: DARATUMUMAB
     Route: 042
  8. METOPROLOL. [Concomitant]
     Active Substance: METOPROLOL
     Dates: start: 20160922
  9. TYLENOL [Concomitant]
     Active Substance: ACETAMINOPHEN
     Dates: start: 20170926
  10. ACYCLOVIR. [Concomitant]
     Active Substance: ACYCLOVIR
     Dates: start: 20170926
  11. METHYLPREDNISOLONE. [Concomitant]
     Active Substance: METHYLPREDNISOLONE
     Dates: start: 20171027
  12. SOLU?MEDROL [Concomitant]
     Active Substance: METHYLPREDNISOLONE SODIUM SUCCINATE
     Dates: start: 20170926
  13. NIVOLUMAB [Suspect]
     Active Substance: NIVOLUMAB
     Indication: ADENOCARCINOMA PANCREAS
     Route: 042
     Dates: start: 20171010
  14. ATORVASTATIN [Concomitant]
     Active Substance: ATORVASTATIN
     Dates: start: 20160922
  15. OMEPRAZOLE. [Concomitant]
     Active Substance: OMEPRAZOLE
     Dates: start: 20160922
  16. SINGULAIR [Concomitant]
     Active Substance: MONTELUKAST SODIUM
     Dates: start: 20170926
  17. PREDNISONE. [Concomitant]
     Active Substance: PREDNISONE
     Dates: start: 20171027
  18. PEPCID [Concomitant]
     Active Substance: FAMOTIDINE
     Dates: start: 20170926

REACTIONS (2)
  - Pneumonitis [Recovered/Resolved]
  - Non-cardiac chest pain [Recovered/Resolved]

NARRATIVE: CASE EVENT DATE: 20171022
